FAERS Safety Report 23610853 (Version 1)
Quarter: 2024Q1

REPORT INFORMATION
  Report Type: Spontaneous
  Country: US (occurrence: US)
  Receive Date: 20240308
  Receipt Date: 20240308
  Transmission Date: 20240410
  Serious: No
  Sender: FDA-Public Use
  Company Number: US-NEURELIS, INC.-2023NEU000076

PATIENT
  Sex: Female

DRUGS (2)
  1. VALTOCO [Suspect]
     Active Substance: DIAZEPAM
     Indication: Seizure
     Dosage: 20 MILLIGRAM
     Route: 045
     Dates: start: 20230618
  2. KEPPRA [Concomitant]
     Active Substance: LEVETIRACETAM
     Indication: Seizure
     Dosage: UNK

REACTIONS (2)
  - Confusional state [Recovered/Resolved]
  - Fatigue [Recovered/Resolved]

NARRATIVE: CASE EVENT DATE: 20230618
